FAERS Safety Report 6336920-0 (Version None)
Quarter: 2009Q3

REPORT INFORMATION
  Report Type: 
  Country: None (occurrence: None)
  Receive Date: 20090901
  Receipt Date: 20090825
  Transmission Date: 20100115
  Serious: Yes (Other)
  Sender: FDA-Public Use
  Company Number: US-ROCHE-652907

PATIENT
  Age: 1 Year

DRUGS (3)
  1. MYCOPHENOLATE MOFETIL [Suspect]
     Indication: AUTOIMMUNE DISORDER
     Route: 065
  2. RITUXIMAB [Suspect]
     Indication: AUTOIMMUNE DISORDER
     Route: 065
  3. PREDNISONE [Suspect]
     Indication: AUTOIMMUNE DISORDER
     Route: 065

REACTIONS (2)
  - ANAEMIA HAEMOLYTIC AUTOIMMUNE [None]
  - NEUTROPENIA [None]
